FAERS Safety Report 25222666 (Version 1)
Quarter: 2025Q2

REPORT INFORMATION
  Report Type: Report from Study
  Country: CA (occurrence: CA)
  Receive Date: 20250421
  Receipt Date: 20250421
  Transmission Date: 20250716
  Serious: Yes (Hospitalization, Other)
  Sender: ABBVIE
  Company Number: CA-ABBVIE-6232553

PATIENT
  Age: 47 Year
  Sex: Female

DRUGS (1)
  1. SKYRIZI [Suspect]
     Active Substance: RISANKIZUMAB-RZAA
     Indication: Crohn^s disease
     Dosage: STRENGTH: 360MG ON BODY INJECTOR
     Route: 058
     Dates: start: 20240523

REACTIONS (3)
  - Prolapse repair [Unknown]
  - Hysterectomy [Unknown]
  - Cystitis [Unknown]

NARRATIVE: CASE EVENT DATE: 20250401
